FAERS Safety Report 6551723-X (Version None)
Quarter: 2010Q1

REPORT INFORMATION
  Report Type: 
  Country: None (occurrence: None)
  Receive Date: 20100126
  Receipt Date: 20100120
  Transmission Date: 20100710
  Serious: Yes (Death)
  Sender: FDA-Public Use
  Company Number: GB-ELI_LILLY_AND_COMPANY-GB200901000051

PATIENT
  Sex: Male
  Weight: 111 kg

DRUGS (11)
  1. BYETTA [Suspect]
     Dosage: 5 UG, UNKNOWN
     Route: 058
     Dates: start: 20081201
  2. ASPIRIN [Concomitant]
     Dosage: UNK, UNKNOWN
     Route: 065
  3. ATENOLOL [Concomitant]
     Dosage: UNK, UNKNOWN
     Route: 065
  4. DIGOXIN [Concomitant]
     Dosage: UNK, UNKNOWN
     Route: 065
  5. FUROSEMIDE [Concomitant]
     Dosage: UNK, UNKNOWN
     Route: 065
  6. GLICLAZIDE [Concomitant]
     Dosage: UNK, UNKNOWN
     Route: 065
  7. INSULIN [Concomitant]
     Dosage: UNK, UNKNOWN
     Route: 065
  8. ISOSORBIDE MONONITRATE [Concomitant]
     Dosage: UNK, UNKNOWN
     Route: 065
  9. SIMVASTATIN [Concomitant]
     Dosage: UNK, UNKNOWN
     Route: 065
  10. WARFARIN [Concomitant]
     Dosage: UNK, UNKNOWN
     Route: 065
  11. HUMALOG MIX 75/25 [Concomitant]

REACTIONS (2)
  - DYSPNOEA [None]
  - SUDDEN DEATH [None]
